FAERS Safety Report 9370019 (Version 2)
Quarter: 2013Q3

REPORT INFORMATION
  Report Type: Spontaneous
  Country: FR (occurrence: FR)
  Receive Date: 20130626
  Receipt Date: 20130725
  Transmission Date: 20140515
  Serious: Yes (Hospitalization)
  Sender: FDA-Public Use
  Company Number: FR-009507513-1306FRA009550

PATIENT
  Age: 93 Year
  Sex: Female

DRUGS (9)
  1. SINGULAIR [Suspect]
     Dosage: UNK
     Route: 048
     Dates: start: 2010, end: 201303
  2. TARDYFERON [Suspect]
     Dosage: UNK
     Route: 048
     Dates: start: 2010, end: 201303
  3. CACIT VITAMINE D3 [Suspect]
     Dosage: 1 DF, QD
     Route: 048
     Dates: start: 2010
  4. CHRONADALATE [Suspect]
     Dosage: 1 DF, QD
     Route: 048
     Dates: start: 2010, end: 20130523
  5. DAFALGAN [Suspect]
     Dosage: 1 DF, TID
     Route: 048
     Dates: start: 2010
  6. DISCOTRINE [Suspect]
     Dosage: 1 DF, QD
     Route: 062
     Dates: start: 2010
  7. INEXIUM [Suspect]
     Dosage: 1 DF, QD
     Route: 048
     Dates: start: 2010
  8. PREVISCAN [Suspect]
     Dosage: 0.75 DF, QD
     Route: 048
  9. TAHOR [Suspect]
     Dosage: 1 DF, QD
     Route: 048
     Dates: start: 2010

REACTIONS (1)
  - Toxic skin eruption [Unknown]
